FAERS Safety Report 9507343 (Version 2)
Quarter: 2013Q3

REPORT INFORMATION
  Report Type: Spontaneous
  Country: JP (occurrence: JP)
  Receive Date: 20130909
  Receipt Date: 20130911
  Transmission Date: 20140515
  Serious: Yes (Other)
  Sender: FDA-Public Use
  Company Number: JP-PFIZER INC-2013257361

PATIENT
  Age: 44 Year
  Sex: Female

DRUGS (1)
  1. CHAMPIX [Suspect]
     Indication: SMOKING CESSATION THERAPY
     Dosage: 1MG/DAY
     Route: 048
     Dates: start: 20130831, end: 20130905

REACTIONS (2)
  - Feeling abnormal [Recovering/Resolving]
  - Ataxia [Recovering/Resolving]
